FAERS Safety Report 20381149 (Version 1)
Quarter: 2022Q1

REPORT INFORMATION
  Report Type: Spontaneous
  Country: FR (occurrence: FR)
  Receive Date: 20220127
  Receipt Date: 20220127
  Transmission Date: 20220423
  Serious: Yes (Hospitalization)
  Sender: FDA-Public Use
  Company Number: None

PATIENT
  Age: 46 Year
  Sex: Male
  Weight: 100 kg

DRUGS (8)
  1. RIVAROXABAN [Suspect]
     Active Substance: RIVAROXABAN
     Indication: Prophylaxis
     Dosage: UNK; XARELTO
     Route: 048
     Dates: end: 20210922
  2. PLAVIX [Suspect]
     Active Substance: CLOPIDOGREL BISULFATE
     Dosage: UNK
     Route: 048
  3. KARDEGIC [Suspect]
     Active Substance: ASPIRIN DL-LYSINE
     Indication: Prophylaxis
     Dosage: UNK
     Route: 048
     Dates: end: 20210922
  4. COMIRNATY [Suspect]
     Active Substance: TOZINAMERAN
     Indication: Prophylaxis
     Dosage: UNK; D2, INJECTION (PUNCTURE)
     Route: 048
     Dates: end: 20210922
  5. TAHOR [Concomitant]
     Active Substance: ATORVASTATIN CALCIUM
     Indication: Dyslipidaemia
     Dosage: UNK; USUAL TREATMENT
  6. SOTALOL HYDROCHLORIDE [Concomitant]
     Active Substance: SOTALOL HYDROCHLORIDE
     Indication: Prophylaxis
     Dosage: UNK; USUAL TREATMENT
  7. NITROGLYCERIN [Concomitant]
     Active Substance: NITROGLYCERIN
     Indication: Prophylaxis
     Dosage: UNK; USUAL TREATMENT
  8. RAMIPRIL [Concomitant]
     Active Substance: RAMIPRIL
     Indication: Hypertension
     Dosage: UNK; USUAL TREATMENT

REACTIONS (1)
  - Haematuria [Recovered/Resolved]

NARRATIVE: CASE EVENT DATE: 20210915
